FAERS Safety Report 13760841 (Version 1)
Quarter: 2017Q3

REPORT INFORMATION
  Report Type: Spontaneous
  Country: US (occurrence: US)
  Receive Date: 20170717
  Receipt Date: 20170717
  Transmission Date: 20171127
  Serious: Yes (Life-Threatening, Other)
  Sender: FDA-Public Use
  Company Number: US-PFIZER INC-2017303921

PATIENT
  Age: 51 Year
  Sex: Male
  Weight: 92.4 kg

DRUGS (1)
  1. VANCOMYCIN HCL [Suspect]
     Active Substance: VANCOMYCIN HYDROCHLORIDE
     Indication: PYREXIA
     Dosage: SINGLE (1 GRAM/100ML VIA PUMP AT A RATE OF 146ML/HR)
     Route: 042
     Dates: start: 20170628, end: 20170628

REACTIONS (4)
  - Pulse absent [Recovered/Resolved]
  - Infusion site pain [Unknown]
  - Product use in unapproved indication [Unknown]
  - Loss of consciousness [Recovered/Resolved]

NARRATIVE: CASE EVENT DATE: 20170628
